FAERS Safety Report 5803595-6 (Version None)
Quarter: 2008Q3

REPORT INFORMATION
  Report Type: 
  Country: None (occurrence: None)
  Receive Date: 20080708
  Receipt Date: 20080626
  Transmission Date: 20090109
  Serious: Yes (Other)
  Sender: FDA-Public Use
  Company Number: US-ABBOTT-08P-163-0461081-00

PATIENT
  Sex: Female
  Weight: 68.1 kg

DRUGS (19)
  1. HUMIRA [Suspect]
     Indication: RHEUMATOID ARTHRITIS
     Route: 058
     Dates: start: 20070101, end: 20080601
  2. LEFLUNOMIDE [Concomitant]
     Indication: RHEUMATOID ARTHRITIS
     Route: 048
  3. PREDNISONE TAB [Concomitant]
     Indication: RHEUMATOID ARTHRITIS
     Route: 048
  4. FOLIC ACID [Concomitant]
     Indication: RHEUMATOID ARTHRITIS
     Route: 048
  5. AMLODIPINE [Concomitant]
     Indication: HYPERTENSION
     Route: 048
  6. METOPROLOL SUCCINATE [Concomitant]
     Indication: HYPERTENSION
     Route: 048
  7. HYDROCHLOROTHIAZIDE [Concomitant]
     Indication: DIURETIC THERAPY
  8. ATORVASTATIN CALCIUM [Concomitant]
     Indication: BLOOD CHOLESTEROL INCREASED
     Route: 048
     Dates: start: 20080201
  9. TOLTERODINE TARTRATE [Concomitant]
     Indication: URINARY INCONTINENCE
     Route: 048
  10. ESTROPIPATE [Concomitant]
     Indication: OESTROGEN THERAPY
     Route: 048
     Dates: start: 19980101
  11. MONTELUKAST SODIUM [Concomitant]
     Indication: HYPERSENSITIVITY
     Route: 048
  12. MONTELUKAST SODIUM [Concomitant]
     Indication: ASTHMA
  13. ALBUTEROL [Concomitant]
     Indication: HYPERSENSITIVITY
     Route: 048
  14. ALBUTEROL [Concomitant]
     Indication: ASTHMA
  15. GUAIFENESIN [Concomitant]
     Indication: HYPERSENSITIVITY
  16. GUAIFENESIN [Concomitant]
     Indication: ASTHMA
  17. SUMATRIPTAN SUCCINATE [Concomitant]
     Indication: MIGRAINE
  18. AXOTAL [Concomitant]
     Indication: MIGRAINE
     Route: 048
  19. ACETAMINOPHEN W/ PROPOXYPHENE HCL [Concomitant]
     Indication: PAIN
     Route: 048

REACTIONS (2)
  - BACK INJURY [None]
  - MENISCUS LESION [None]
